FAERS Safety Report 7606439-5 (Version None)
Quarter: 2011Q3

REPORT INFORMATION
  Report Type: 
  Country: None (occurrence: None)
  Receive Date: 20110713
  Receipt Date: 20110708
  Transmission Date: 20111222
  Serious: Yes (Hospitalization)
  Sender: FDA-Public Use
  Company Number: US-SANOFI-AVENTIS-2011SA043904

PATIENT
  Age: 61 Year
  Sex: Female

DRUGS (10)
  1. MULTAQ [Suspect]
     Route: 048
     Dates: start: 20100821
  2. NEUPOGEN [Concomitant]
     Dosage: TAKEN 300 MCG DAILY FOR 2 DAYS AFTER WEEKLY TOPOTECAN CHEMOTHERAPY, REPEATED THROUGH CHEMOTHERAPY
     Route: 058
  3. COUMADIN [Concomitant]
  4. FIORINAL W/CODEINE [Concomitant]
     Indication: MIGRAINE
     Dosage: ONE OR TWO TABLETS AS NEEDED
  5. COREG [Concomitant]
  6. LOVENOX [Concomitant]
     Route: 065
  7. ZANTAC [Concomitant]
  8. NORCO [Concomitant]
     Dosage: ONE OR TEWO TABS EVERY FOUR OR SIX HOURS
  9. TOPOTECAN [Concomitant]
  10. COUMADIN [Concomitant]

REACTIONS (1)
  - ARRHYTHMIA [None]
